FAERS Safety Report 5926621-2 (Version None)
Quarter: 2008Q4

REPORT INFORMATION
  Report Type: 
  Country: None (occurrence: None)
  Receive Date: 20081022
  Receipt Date: 20081020
  Transmission Date: 20090506
  Serious: Yes (Death, Hospitalization)
  Sender: FDA-Public Use
  Company Number: B0539540A

PATIENT
  Age: 82 Year
  Sex: Male

DRUGS (12)
  1. ARTIST [Suspect]
     Indication: CARDIAC FAILURE
     Dosage: 2.5MG TWICE PER DAY
     Route: 048
     Dates: start: 20080507, end: 20080904
  2. CANDESARTAN CILEXETIL [Suspect]
     Indication: CARDIAC FAILURE
     Dosage: 4MG PER DAY
     Route: 048
     Dates: start: 20080430, end: 20080904
  3. OMEPRAZOLE [Suspect]
     Dosage: 10MG PER DAY
     Route: 065
     Dates: start: 20080430, end: 20080904
  4. ASPIRIN [Concomitant]
  5. SIGMART [Concomitant]
  6. ITOROL [Concomitant]
  7. ENALAPRIL MALEATE [Concomitant]
  8. TANATRIL [Concomitant]
  9. BASEN [Concomitant]
  10. MYSLEE [Concomitant]
  11. SIGMART [Concomitant]
     Dates: start: 20080509, end: 20080904
  12. LASIX [Concomitant]

REACTIONS (10)
  - ADVERSE DRUG REACTION [None]
  - ASTHENIA [None]
  - BLOOD CREATINE PHOSPHOKINASE INCREASED [None]
  - CONVULSION [None]
  - DIARRHOEA [None]
  - MALAISE [None]
  - RENAL FAILURE ACUTE [None]
  - RESPIRATORY ARREST [None]
  - RHABDOMYOLYSIS [None]
  - URINE OUTPUT DECREASED [None]
